FAERS Safety Report 4606854-8 (Version None)
Quarter: 2005Q1

REPORT INFORMATION
  Report Type: 
  Country: None (occurrence: None)
  Receive Date: 20050314
  Receipt Date: 20050303
  Transmission Date: 20050727
  Serious: Yes (Hospitalization)
  Sender: FDA-Public Use
  Company Number: 200510802FR

PATIENT
  Age: 67 Year
  Sex: Male
  Weight: 68 kg

DRUGS (7)
  1. NASACORT [Suspect]
     Indication: CHRONIC SINUSITIS
     Route: 045
     Dates: start: 20041103, end: 20050125
  2. NASACORT [Suspect]
     Indication: RHINITIS
     Route: 045
     Dates: start: 20041103, end: 20050125
  3. ALDACTONE [Concomitant]
     Indication: ESSENTIAL HYPERTENSION
     Route: 048
     Dates: start: 20041130
  4. NISIS [Concomitant]
     Indication: ESSENTIAL HYPERTENSION
     Route: 048
     Dates: start: 20041130
  5. ZYLORIC [Concomitant]
     Indication: HYPERURICAEMIA
     Route: 048
     Dates: start: 20041130
  6. XATRAL [Concomitant]
     Route: 048
     Dates: start: 20041130
  7. PLAVIX [Concomitant]
     Indication: PROPHYLAXIS
     Route: 048
     Dates: start: 20041130

REACTIONS (1)
  - RESPIRATORY DISORDER [None]
